FAERS Safety Report 11196846 (Version 2)
Quarter: 2015Q4

REPORT INFORMATION
  Report Type: Spontaneous
  Country: JP (occurrence: JP)
  Receive Date: 20150617
  Receipt Date: 20151124
  Transmission Date: 20160304
  Serious: Yes (Hospitalization)
  Sender: FDA-Public Use
  Company Number: JP-B.I. PHARMACEUTICALS,INC./RIDGEFIELD-2015-BI-32151NB

PATIENT
  Age: 73 Year
  Sex: Female

DRUGS (1)
  1. GILOTRIF [Suspect]
     Active Substance: AFATINIB
     Indication: LUNG NEOPLASM MALIGNANT
     Route: 048
     Dates: start: 20150117

REACTIONS (5)
  - Cerebral infarction [Unknown]
  - Paronychia [Unknown]
  - Stomatitis [Unknown]
  - Skin disorder [Unknown]
  - Diarrhoea [Not Recovered/Not Resolved]
